FAERS Safety Report 15045279 (Version 3)
Quarter: 2018Q4

REPORT INFORMATION
  Report Type: Report from Study
  Country: JP (occurrence: JP)
  Receive Date: 20180621
  Receipt Date: 20181217
  Transmission Date: 20190204
  Serious: Yes (Death, Other)
  Sender: FDA-Public Use
  Company Number: JP-INCYTE CORPORATION-2018IN005972

PATIENT

DRUGS (13)
  1. JAKAVI [Suspect]
     Active Substance: RUXOLITINIB
     Dosage: 5 MG, QD
     Route: 048
     Dates: start: 20170612, end: 20170712
  2. JAKAVI [Suspect]
     Active Substance: RUXOLITINIB
     Dosage: 5 MG, BID
     Route: 048
     Dates: start: 20170713, end: 20170717
  3. METHOTREXATE. [Concomitant]
     Active Substance: METHOTREXATE
     Indication: PROPHYLAXIS AGAINST GRAFT VERSUS HOST DISEASE
     Dosage: UNK
     Route: 065
  4. HYDREA [Concomitant]
     Active Substance: HYDROXYUREA
     Indication: MYELOFIBROSIS
     Dosage: 1500 MG, UNK
     Route: 048
     Dates: end: 20170731
  5. CYTARABINE. [Concomitant]
     Active Substance: CYTARABINE
     Indication: BONE MARROW CONDITIONING REGIMEN
     Dosage: 3 G/KG, UNK
     Route: 065
  6. CYCLOPHOSPHAMIDE MONOHYDRATE [Concomitant]
     Active Substance: CYCLOPHOSPHAMIDE
     Indication: BONE MARROW CONDITIONING REGIMEN
     Dosage: 60 MG/KG, UNK
     Route: 065
  7. JAKAVI [Suspect]
     Active Substance: RUXOLITINIB
     Indication: MYELOFIBROSIS
     Dosage: 5 MG, QOD
     Route: 048
     Dates: start: 20170522, end: 20170611
  8. OZEX                               /01070602/ [Concomitant]
     Active Substance: TOSUFLOXACIN TOSYLATE
     Indication: OPPORTUNISTIC INFECTION PROPHYLAXIS
     Dosage: 450 MG, UNK
     Route: 048
     Dates: start: 20170727, end: 20170808
  9. MICAFUNGIN SODIUM [Concomitant]
     Active Substance: MICAFUNGIN SODIUM
     Indication: OPPORTUNISTIC INFECTION PROPHYLAXIS
     Dosage: 75 MG, UNK
     Route: 065
     Dates: start: 20170727, end: 20170731
  10. JAKAVI [Suspect]
     Active Substance: RUXOLITINIB
     Dosage: 15 MG, IN TWO DIVIDED DOSES
     Route: 048
     Dates: start: 20170718, end: 20170731
  11. CICLOSPORIN [Suspect]
     Active Substance: CYCLOSPORINE
     Indication: CORD BLOOD TRANSPLANT THERAPY
     Dosage: UNK
     Route: 065
  12. METHYLPREDNISOLONE. [Concomitant]
     Active Substance: METHYLPREDNISOLONE
     Indication: PROPHYLAXIS AGAINST GRAFT VERSUS HOST DISEASE
     Dosage: 2 MG/KG, UNK
     Route: 065
  13. BAKTAR [Concomitant]
     Active Substance: SULFAMETHOXAZOLE\TRIMETHOPRIM
     Indication: OPPORTUNISTIC INFECTION PROPHYLAXIS
     Dosage: 4 DF, UNK
     Route: 048
     Dates: start: 20170720, end: 20170728

REACTIONS (10)
  - Pyrexia [Unknown]
  - Rash [Recovering/Resolving]
  - White blood cell count increased [Unknown]
  - Aspartate aminotransferase increased [Unknown]
  - Acute respiratory distress syndrome [Unknown]
  - Haemoglobin decreased [Not Recovered/Not Resolved]
  - Hypoxia [Unknown]
  - General physical health deterioration [Fatal]
  - Multiple organ dysfunction syndrome [Fatal]
  - Myelofibrosis [Fatal]

NARRATIVE: CASE EVENT DATE: 20170929
